FAERS Safety Report 8448287-2 (Version None)
Quarter: 2012Q2

REPORT INFORMATION
  Report Type: 
  Country: None (occurrence: None)
  Receive Date: 20120619
  Receipt Date: 20120613
  Transmission Date: 20120825
  Serious: Yes (Death, Hospitalization)
  Sender: FDA-Public Use
  Company Number: GR-SHIRE-SPV1-2012-00541

PATIENT
  Age: 67 Year
  Sex: Male

DRUGS (1)
  1. FIRAZYR [Suspect]
     Indication: HEREDITARY ANGIOEDEMA
     Dosage: 30 MG, ONE DOSE
     Route: 058
     Dates: start: 20120518, end: 20120518

REACTIONS (1)
  - MYOCARDIAL INFARCTION [None]
